FAERS Safety Report 6497535-7 (Version None)
Quarter: 2009Q4

REPORT INFORMATION
  Report Type: 
  Country: None (occurrence: None)
  Receive Date: 20091215
  Receipt Date: 20091207
  Transmission Date: 20100525
  Serious: Yes (Death, Other)
  Sender: FDA-Public Use
  Company Number: HQWYE208917JUL04

PATIENT
  Sex: Female
  Weight: 87.62 kg

DRUGS (11)
  1. PREMPRO [Suspect]
     Indication: HORMONE REPLACEMENT THERAPY
     Dosage: 0.625/2.5MG DAILY
     Route: 048
     Dates: start: 19950616, end: 20020501
  2. PREMPRO [Suspect]
     Indication: MENOPAUSE
  3. LOPRESSOR [Concomitant]
     Indication: CARDIAC DISORDER
     Dosage: 50-100 MG BID DAILY
  4. LIPITOR [Concomitant]
     Dosage: 10 MG DAILY
  5. XALATAN [Concomitant]
  6. CAPOTEN [Concomitant]
  7. XANAX [Concomitant]
  8. AVAPRO [Concomitant]
     Dosage: 150 MG DAILY
  9. ESOMEPRAZOLE [Concomitant]
     Dosage: 40 MG DAILY
  10. ASPIRIN [Concomitant]
  11. MAXZIDE [Concomitant]
     Dosage: 50/75 DAILY

REACTIONS (12)
  - ANXIETY [None]
  - BREAST CANCER METASTATIC [None]
  - CELLULITIS [None]
  - DEPRESSION [None]
  - HAEMATOCRIT DECREASED [None]
  - HEPATIC CANCER METASTATIC [None]
  - HYSTERECTOMY [None]
  - OESTROGEN RECEPTOR ASSAY POSITIVE [None]
  - OOPHORECTOMY BILATERAL [None]
  - PLATELET COUNT DECREASED [None]
  - PROGESTERONE RECEPTOR ASSAY POSITIVE [None]
  - WHITE BLOOD CELL COUNT DECREASED [None]
